FAERS Safety Report 10288952 (Version 3)
Quarter: 2015Q1

REPORT INFORMATION
  Report Type: Other
  Country: FR (occurrence: JP)
  Receive Date: 20140709
  Receipt Date: 20150121
  Transmission Date: 20150720
  Serious: Yes (Other)
  Sender: FDA-Public Use
  Company Number: JP-FRI-1000068733

PATIENT
  Age: 62 Year
  Sex: Male
  Weight: 91 kg

DRUGS (16)
  1. ROCURONIUM BROMIDE. [Interacting]
     Active Substance: ROCURONIUM BROMIDE
     Indication: INDUCTION OF ANAESTHESIA
     Route: 042
  2. THYROID HORMONES [Concomitant]
     Active Substance: UNSPECIFIED INGREDIENT
  3. MIANSERIN HYDROCHLORIDE [Interacting]
     Active Substance: MIANSERIN HYDROCHLORIDE
     Indication: DEPRESSION
     Route: 048
  4. YOKUKASAN EXTRACT [Concomitant]
     Dosage: 7.5 GRAM
  5. MILNACIPRAN [Suspect]
     Active Substance: MILNACIPRAN
     Indication: DEPRESSION
     Route: 048
  6. STOMACHICS [Concomitant]
  7. DILTIAZEM HYDROCHLORIDE. [Interacting]
     Active Substance: DILTIAZEM HYDROCHLORIDE
     Indication: DEPRESSION
     Route: 048
  8. AGENTS FOR HYPDERLIPIDEMIAS [Concomitant]
  9. ZOLPIDEM TARTRATE. [Interacting]
     Active Substance: ZOLPIDEM TARTRATE
     Indication: DEPRESSION
     Route: 048
  10. AMOBARBITAL [Interacting]
     Active Substance: AMOBARBITAL
     Indication: DEPRESSION
     Route: 048
  11. BROMOVALERYLUREA [Interacting]
     Active Substance: BROMISOVAL
     Indication: DEPRESSION
     Route: 048
  12. DONEPEZIL HYDROCHLORIDE. [Interacting]
     Active Substance: DONEPEZIL HYDROCHLORIDE
     Indication: DEPRESSION
     Route: 048
  13. ANTIHYPERTENSIVES [Concomitant]
     Active Substance: UNSPECIFIED INGREDIENT
  14. PROPOFOL. [Interacting]
     Active Substance: PROPOFOL
     Indication: INDUCTION OF ANAESTHESIA
     Route: 042
  15. BROMAZEPAM [Interacting]
     Active Substance: BROMAZEPAM
     Indication: DEPRESSION
     Route: 048
  16. DIURETICS [Concomitant]
     Active Substance: UNSPECIFIED INGREDIENT

REACTIONS (2)
  - Procedural hypotension [Recovered/Resolved]
  - Drug interaction [Recovered/Resolved]
